FAERS Safety Report 10075960 (Version 2)
Quarter: 2014Q2

REPORT INFORMATION
  Report Type: Spontaneous
  Country: DE (occurrence: DE)
  Receive Date: 20140414
  Receipt Date: 20140507
  Transmission Date: 20141212
  Serious: Yes (Other)
  Sender: FDA-Public Use
  Company Number: CHNY2014DE001039

PATIENT
  Age: 67 Year
  Sex: Female

DRUGS (2)
  1. VOLTAREN DOLO [Suspect]
     Dosage: 25 MG, QD
     Route: 048
     Dates: start: 20140405, end: 20140406
  2. VOLTAREN DOLO [Suspect]
     Dosage: 25 MG, QD
     Route: 048
     Dates: start: 20140408, end: 20140408

REACTIONS (4)
  - Malaise [Recovered/Resolved]
  - Hypertension [Recovered/Resolved]
  - Visual impairment [Recovered/Resolved]
  - Restlessness [Recovered/Resolved]
